FAERS Safety Report 6998011-5 (Version None)
Quarter: 2010Q3

REPORT INFORMATION
  Report Type: 
  Country: None (occurrence: None)
  Receive Date: 20100920
  Receipt Date: 20100602
  Transmission Date: 20110219
  Serious: No
  Sender: FDA-Public Use
  Company Number: US-ASTRAZENECA-2007UW01083

PATIENT
  Age: 13818 Day
  Sex: Male
  Weight: 93.9 kg

DRUGS (10)
  1. SEROQUEL [Suspect]
     Indication: BIPOLAR DISORDER
     Dosage: 25-400 MG
     Route: 048
     Dates: start: 19980810, end: 20051031
  2. SEROQUEL [Suspect]
     Indication: ANXIETY
     Dosage: 25-400 MG
     Route: 048
     Dates: start: 19980810, end: 20051031
  3. SEROQUEL [Suspect]
     Indication: AGITATION
     Dosage: 25-400 MG
     Route: 048
     Dates: start: 19980810, end: 20051031
  4. SEROQUEL [Suspect]
     Dosage: 200 MG - 300 MG
     Route: 048
     Dates: start: 20031201, end: 20051001
  5. SEROQUEL [Suspect]
     Dosage: 200 MG - 300 MG
     Route: 048
     Dates: start: 20031201, end: 20051001
  6. SEROQUEL [Suspect]
     Dosage: 200 MG - 300 MG
     Route: 048
     Dates: start: 20031201, end: 20051001
  7. ZYPREXA [Suspect]
     Indication: BIPOLAR DISORDER
     Dates: start: 20030401, end: 20030501
  8. DEPAKOTE [Concomitant]
     Indication: AFFECTIVE DISORDER
     Dosage: 25-2000 MG
     Dates: start: 19991004
  9. ZOLOFT [Concomitant]
     Indication: ANTIDEPRESSANT THERAPY
     Dosage: 50-200 MG
     Dates: start: 20000323
  10. WELLBUTRIN [Concomitant]
     Dosage: 100-300 MG
     Dates: start: 20020815

REACTIONS (16)
  - ABDOMINAL PAIN [None]
  - ARTHRITIS [None]
  - BLOOD CHOLESTEROL INCREASED [None]
  - CHEST PAIN [None]
  - DIARRHOEA [None]
  - HEADACHE [None]
  - HYPERCHOLESTEROLAEMIA [None]
  - MUSCULOSKELETAL PAIN [None]
  - NAUSEA [None]
  - OBESITY [None]
  - PALPITATIONS [None]
  - PYREXIA [None]
  - SINUSITIS [None]
  - TYPE 2 DIABETES MELLITUS [None]
  - URINARY TRACT DISORDER [None]
  - WEIGHT INCREASED [None]
